FAERS Safety Report 4642745-4 (Version None)
Quarter: 2005Q2

REPORT INFORMATION
  Report Type: 
  Country: None (occurrence: None)
  Receive Date: 20050420
  Receipt Date: 20050404
  Transmission Date: 20051028
  Serious: Yes (Hospitalization)
  Sender: FDA-Public Use
  Company Number: 106347ISR

PATIENT
  Age: 59 Year
  Sex: Male

DRUGS (5)
  1. FLUOROURCIL [Suspect]
     Indication: COLON CANCER STAGE III
     Dosage: 755 MILLIGRAMS
     Dates: start: 20040927, end: 20041029
  2. LEUCOVORIN CALCIUM [Suspect]
     Indication: COLON CANCER STAGE III
     Dosage: 750 MILLIGRAM
     Dates: start: 20040927, end: 20041029
  3. CELECOXIB (PLACEBO) [Suspect]
     Indication: COLON CANCER STAGE III
     Dosage: ORAL
     Dates: start: 20040927, end: 20041101
  4. METOCLOPRAMIDE [Concomitant]
  5. ONDANSETRON [Concomitant]

REACTIONS (6)
  - DEHYDRATION [None]
  - DIARRHOEA [None]
  - DRUG TOXICITY [None]
  - NAUSEA [None]
  - SUBILEUS [None]
  - VOMITING [None]
